FAERS Safety Report 11810580 (Version 1)
Quarter: 2015Q4

REPORT INFORMATION
  Report Type: Spontaneous
  Country: JP (occurrence: JP)
  Receive Date: 20151208
  Receipt Date: 20151208
  Transmission Date: 20160305
  Serious: Yes (Other)
  Sender: FDA-Public Use
  Company Number: JP-FERRINGPH-2015FE04532

PATIENT

DRUGS (2)
  1. GONAX [Suspect]
     Active Substance: DEGARELIX
     Indication: PROSTATE CANCER
     Route: 058
  2. KEISHIBUKURYOGAN [Concomitant]
     Active Substance: HERBALS
     Indication: HOT FLUSH
     Route: 048

REACTIONS (6)
  - Platelet count decreased [Unknown]
  - Palpitations [Unknown]
  - Bundle branch block left [Unknown]
  - Abdominal discomfort [Unknown]
  - Hot flush [Unknown]
  - Gamma-glutamyltransferase increased [Unknown]
